FAERS Safety Report 10226711 (Version 1)
Quarter: 2014Q2

REPORT INFORMATION
  Report Type: Spontaneous
  Country: GB (occurrence: GB)
  Receive Date: 20140610
  Receipt Date: 20140610
  Transmission Date: 20141212
  Serious: Yes (Other)
  Sender: FDA-Public Use
  Company Number: GB-DRREDDYS-GER/UKI/14/0040707

PATIENT
  Age: 42 Year
  Sex: Male

DRUGS (23)
  1. LAMOTRIGINE [Suspect]
     Indication: PRODUCT USED FOR UNKNOWN INDICATION
  2. LAMOTRIGINE [Suspect]
  3. LAMOTRIGINE [Suspect]
  4. LAMOTRIGINE [Suspect]
  5. CARBAMAZEPINE [Suspect]
     Indication: CONVULSION
     Dates: start: 1988
  6. CARBAMAZEPINE [Suspect]
  7. CARBAMAZEPINE [Suspect]
  8. CARBAMAZEPINE [Suspect]
  9. LAMICTAL [Suspect]
     Indication: EPILEPSY
     Dates: start: 200309
  10. LAMICTAL [Suspect]
  11. LAMICTAL [Suspect]
  12. LAMICTAL [Suspect]
  13. MIDAZOLAM [Suspect]
     Indication: PRODUCT USED FOR UNKNOWN INDICATION
     Route: 002
  14. TEGRETOL [Suspect]
     Indication: EPILEPSY
  15. TEGRETOL [Suspect]
  16. TEGRETOL [Suspect]
     Dates: start: 20140206
  17. TEGRETOL [Suspect]
     Dates: start: 200309, end: 20120511
  18. TEGRETOL [Suspect]
     Dates: start: 1989, end: 20140101
  19. TEGRETOL [Suspect]
  20. TOPIRAMATE [Suspect]
     Indication: PRODUCT USED FOR UNKNOWN INDICATION
  21. VALPROIC ACID [Suspect]
     Indication: PRODUCT USED FOR UNKNOWN INDICATION
     Dates: start: 199305
  22. ADCAL D3 [Concomitant]
     Indication: PRODUCT USED FOR UNKNOWN INDICATION
  23. VITAMIN D [Concomitant]
     Indication: BONE DISORDER

REACTIONS (44)
  - Malaise [Unknown]
  - Insomnia [Unknown]
  - Staring [Unknown]
  - Hyperexplexia [Unknown]
  - Musculoskeletal stiffness [Unknown]
  - Stress [Unknown]
  - Suspiciousness [Unknown]
  - Fatigue [Unknown]
  - Tonic clonic movements [Not Recovered/Not Resolved]
  - Generalised tonic-clonic seizure [Unknown]
  - Tremor [Unknown]
  - Upper respiratory tract infection [Unknown]
  - Abnormal behaviour [Unknown]
  - Petit mal epilepsy [Unknown]
  - Aggression [Unknown]
  - Agitation [Unknown]
  - Depressed level of consciousness [Unknown]
  - Anxiety [Unknown]
  - Ataxia [Not Recovered/Not Resolved]
  - Balance disorder [Unknown]
  - Bone density decreased [Unknown]
  - Catatonia [Unknown]
  - Cerebral ventricle dilatation [Unknown]
  - Complex partial seizures [Unknown]
  - Decreased appetite [Unknown]
  - Diarrhoea [Unknown]
  - Distractibility [Unknown]
  - Drug level increased [Unknown]
  - Toxicity to various agents [Recovered/Resolved]
  - Emotional distress [Unknown]
  - Emotional disorder [Unknown]
  - Euphoric mood [Unknown]
  - Fear [Unknown]
  - Epilepsy [Unknown]
  - Frustration [Unknown]
  - Gait disturbance [Unknown]
  - Gastrointestinal disorder [Unknown]
  - Hallucination [Unknown]
  - Irritability [Unknown]
  - Dyskinesia [Not Recovered/Not Resolved]
  - Depressed mood [Unknown]
  - Microcephaly [Unknown]
  - Psychotic disorder [Unknown]
  - Convulsion [Unknown]
